FAERS Safety Report 24318692 (Version 1)
Quarter: 2024Q3

REPORT INFORMATION
  Report Type: Spontaneous
  Country: HR (occurrence: HR)
  Receive Date: 20240913
  Receipt Date: 20240913
  Transmission Date: 20241017
  Serious: Yes (Other)
  Sender: REGENERON
  Company Number: HR-REGENERON PHARMACEUTICALS, INC.-2024-122305

PATIENT
  Age: 70 Year
  Sex: Female

DRUGS (3)
  1. LIBTAYO [Suspect]
     Active Substance: CEMIPLIMAB-RWLC
     Indication: Squamous cell carcinoma of skin
     Dosage: UNK
     Dates: start: 202212, end: 202306
  2. LIBTAYO [Suspect]
     Active Substance: CEMIPLIMAB-RWLC
     Indication: Skin cancer
  3. LIBTAYO [Suspect]
     Active Substance: CEMIPLIMAB-RWLC
     Indication: Basal cell carcinoma

REACTIONS (3)
  - Metastases to lung [Unknown]
  - Disease progression [Unknown]
  - Condition aggravated [Unknown]
